FAERS Safety Report 18520780 (Version 3)
Quarter: 2022Q3

REPORT INFORMATION
  Report Type: Spontaneous
  Country: CZ (occurrence: CZ)
  Receive Date: 20201119
  Receipt Date: 20220818
  Transmission Date: 20221027
  Serious: Yes (Hospitalization, Disabling, Other)
  Sender: FDA-Public Use
  Company Number: CZ-TEVA-2020-CZ-1844335

PATIENT
  Age: 10 Decade
  Sex: Female

DRUGS (29)
  1. TRAMADOL [Suspect]
     Active Substance: TRAMADOL
     Indication: Product used for unknown indication
     Dosage: UNK
     Route: 065
  2. AMLODIPINE BESYLATE [Suspect]
     Active Substance: AMLODIPINE BESYLATE
     Indication: Product used for unknown indication
     Dosage: 5 MILLIGRAM, ONCE A DAY
     Route: 065
  3. FOLIC ACID [Suspect]
     Active Substance: FOLIC ACID
     Indication: Product used for unknown indication
     Dosage: 1 DOSAGE FORM, ONCE A DAY
     Route: 065
  4. METOPROLOL SUCCINATE [Suspect]
     Active Substance: METOPROLOL SUCCINATE
     Indication: Product used for unknown indication
     Dosage: 25 MILLIGRAM, ONCE A DAY
     Route: 065
  5. CALCIUM\CHOLECALCIFEROL [Suspect]
     Active Substance: CALCIUM\CHOLECALCIFEROL
     Indication: Product used for unknown indication
     Dosage: 1 DOSAGE FORM, ONCE A DAY
     Route: 065
  6. MAGNESIUM ASPARTATE\POTASSIUM ASPARTATE [Suspect]
     Active Substance: MAGNESIUM ASPARTATE\POTASSIUM ASPARTATE
     Indication: Product used for unknown indication
     Dosage: 1 DOSAGE FORM, ONCE A DAY QD (0-1-0)
     Route: 065
  7. CONTROLOC [Suspect]
     Active Substance: PANTOPRAZOLE SODIUM
     Indication: Product used for unknown indication
     Dosage: 20 MILLIGRAM, ONCE A DAY
     Route: 065
  8. SODIUM CHONDROITIN SULFATE [Suspect]
     Active Substance: SODIUM CHONDROITIN SULFATE
     Indication: Rheumatoid arthritis
     Dosage: 800 MILLIGRAM, ONCE A DAY
     Route: 065
  9. CORDARONE [Suspect]
     Active Substance: AMIODARONE HYDROCHLORIDE
     Indication: Product used for unknown indication
     Dosage: 200 MILLIGRAM, ONCE A DAY
     Route: 065
  10. FENTANYL [Suspect]
     Active Substance: FENTANYL
     Indication: Post herpetic neuralgia
     Dosage: 25 MICROGRAM, 72 HOUR
     Route: 065
     Dates: start: 2015
  11. FENTANYL [Suspect]
     Active Substance: FENTANYL
     Indication: Pain
  12. ELIQUIS [Suspect]
     Active Substance: APIXABAN
     Indication: Anticoagulant therapy
     Dosage: 5 MILLIGRAM, ONCE A DAY
     Route: 065
  13. EUTHYROX [Suspect]
     Active Substance: LEVOTHYROXINE SODIUM
     Indication: Autoimmune thyroiditis
     Dosage: 100 MICROGRAM, ONCE A DAY
     Route: 048
  14. EUTHYROX [Suspect]
     Active Substance: LEVOTHYROXINE SODIUM
     Indication: Hypothyroidism
  15. SODIUM PICOSULFATE [Suspect]
     Active Substance: SODIUM PICOSULFATE
     Indication: Constipation
     Dosage: UNK (10-20 GTT IN THE EVENING)
     Route: 065
  16. ZOLPIDEM TARTRATE [Suspect]
     Active Substance: ZOLPIDEM TARTRATE
     Indication: Product used for unknown indication
     Dosage: UNK
     Route: 065
  17. IBUPROFEN [Suspect]
     Active Substance: IBUPROFEN
     Indication: Pain
     Dosage: UNK
     Route: 065
  18. MAGNESIUM ASPARTATE [Suspect]
     Active Substance: MAGNESIUM ASPARTATE
     Indication: Product used for unknown indication
     Dosage: UNK
     Route: 065
  19. METAMIZOLE [Suspect]
     Active Substance: METAMIZOLE
     Indication: Post herpetic neuralgia
     Dosage: UNK
     Route: 065
  20. METHOTREXATE [Suspect]
     Active Substance: METHOTREXATE
     Indication: Rheumatoid arthritis
     Dosage: 10 MILLIGRAM, EVERY WEEK
     Route: 048
     Dates: start: 2010
  21. METAMIZOLE [Suspect]
     Active Substance: METAMIZOLE
     Indication: Product used for unknown indication
     Dosage: 500 MILLIGRAM, TWO TIMES A DAY
     Route: 065
  22. MELOXICAM [Suspect]
     Active Substance: MELOXICAM
     Indication: Post herpetic neuralgia
     Dosage: 1 DOSAGE FORM, EVERY WEEK
     Route: 065
     Dates: start: 2015
  23. OXAZEPAM [Suspect]
     Active Substance: OXAZEPAM
     Indication: Product used for unknown indication
     Dosage: UNK
     Route: 065
  24. PANADOL [Suspect]
     Active Substance: ACETAMINOPHEN
     Indication: Pain
     Dosage: 1.5 DOSAGE FORM (3-4 TIMES A DAY)
     Route: 065
  25. POTASSIUM ASPARTATE [Suspect]
     Active Substance: POTASSIUM ASPARTATE
     Indication: Product used for unknown indication
     Dosage: UNK
     Route: 065
  26. PREDNISONE [Suspect]
     Active Substance: PREDNISONE
     Indication: Product used for unknown indication
     Dosage: 5 MILLIGRAM, ONCE A DAY
     Route: 048
  27. ROSUVASTATIN CALCIUM [Suspect]
     Active Substance: ROSUVASTATIN CALCIUM
     Indication: Product used for unknown indication
     Dosage: 20 MILLIGRAM, ONCE A DAY
     Route: 065
  28. ZOLPIDEM TARTRATE [Suspect]
     Active Substance: ZOLPIDEM TARTRATE
     Indication: Product used for unknown indication
     Dosage: UNK
     Route: 065
  29. TELMISARTAN [Suspect]
     Active Substance: TELMISARTAN
     Indication: Product used for unknown indication
     Dosage: 1 DOSAGE FORM, ONCE A DAY (80/12.5 MG)
     Route: 065

REACTIONS (23)
  - Fall [Recovering/Resolving]
  - Pelvic fracture [Recovering/Resolving]
  - Cognitive disorder [Recovering/Resolving]
  - Urinary retention [Recovering/Resolving]
  - Delirium [Recovering/Resolving]
  - Atrial fibrillation [Recovering/Resolving]
  - Drug abuse [Unknown]
  - Anxiety [Recovering/Resolving]
  - Vertigo [Recovering/Resolving]
  - Confusional state [Recovering/Resolving]
  - Apathy [Recovering/Resolving]
  - Hypertension [Recovering/Resolving]
  - Nausea [Recovering/Resolving]
  - Hyponatraemia [Recovering/Resolving]
  - Listless [Recovering/Resolving]
  - Liver function test increased [Recovering/Resolving]
  - Head discomfort [Recovering/Resolving]
  - Oxygen saturation decreased [Recovering/Resolving]
  - Concomitant disease aggravated [Recovering/Resolving]
  - Intentional product misuse [Unknown]
  - Medication error [Recovered/Resolved]
  - Sleep disorder [Recovering/Resolving]
  - Restlessness [Recovering/Resolving]
